FAERS Safety Report 20838574 (Version 1)
Quarter: 2022Q2

REPORT INFORMATION
  Report Type: Spontaneous
  Country: CN (occurrence: CN)
  Receive Date: 20220517
  Receipt Date: 20220517
  Transmission Date: 20220721
  Serious: Yes (Other)
  Sender: FDA-Public Use
  Company Number: CN-PFIZER INC-202200679699

PATIENT
  Age: 4 Year
  Sex: Female
  Weight: 17 kg

DRUGS (5)
  1. CYTARABINE [Suspect]
     Active Substance: CYTARABINE
     Indication: Acute lymphocytic leukaemia
     Dosage: 35.6 MG, 2X/DAY
     Route: 041
     Dates: start: 20220412, end: 20220419
  2. MERCAPTOPURINE [Suspect]
     Active Substance: MERCAPTOPURINE
     Indication: Acute lymphocytic leukaemia
     Dosage: 28.4 MG, 1X/DAY
     Route: 048
     Dates: start: 20220412, end: 20220419
  3. SODIUM CHLORIDE [Suspect]
     Active Substance: SODIUM CHLORIDE
     Indication: Acute lymphocytic leukaemia
     Dosage: 250 ML, 1X/DAY
     Route: 041
     Dates: start: 20220412, end: 20220412
  4. CYCLOPHOSPHAMIDE [Suspect]
     Active Substance: CYCLOPHOSPHAMIDE
     Indication: Acute lymphocytic leukaemia
     Dosage: 0.71 G, 1X/DAY
     Route: 041
     Dates: start: 20220412, end: 20220412
  5. DEXTROSE [Suspect]
     Active Substance: DEXTROSE
     Indication: Acute lymphocytic leukaemia
     Dosage: 100 ML, 2X/DAY
     Route: 041
     Dates: start: 20220412, end: 20220419

REACTIONS (8)
  - Myelosuppression [Recovering/Resolving]
  - Anaemia [Recovering/Resolving]
  - Dizziness [Recovering/Resolving]
  - Asthenia [Recovering/Resolving]
  - Palpitations [Recovering/Resolving]
  - Dyspnoea [Recovering/Resolving]
  - Pallor [Recovering/Resolving]
  - Mental disorder [Unknown]

NARRATIVE: CASE EVENT DATE: 20220419
